FAERS Safety Report 16771792 (Version 1)
Quarter: 2019Q3

REPORT INFORMATION
  Report Type: Spontaneous
  Country: ES (occurrence: ES)
  Receive Date: 20190904
  Receipt Date: 20190904
  Transmission Date: 20191005
  Serious: Yes (Other)
  Sender: FDA-Public Use
  Company Number: ES-GLASSHOUSE PHARMACEUTICALS LIMITED CA-2019GLH00007

PATIENT
  Age: 63 Year
  Sex: Female

DRUGS (4)
  1. CORTICOSTEROIDS [Concomitant]
     Active Substance: CORTICOSTEROID NOS
     Route: 061
  2. CLINDAMYCIN. [Suspect]
     Active Substance: CLINDAMYCIN
     Indication: CELLULITIS
     Dosage: 150 MG EVERY 8 HOURS
     Route: 065
  3. HYMENOPTERA-SPECIFIC IMMUNOTHERAPY [Concomitant]
     Route: 065
  4. SYSTEMIC ANTIHISTAMINES [Concomitant]
     Route: 065

REACTIONS (1)
  - Symmetrical drug-related intertriginous and flexural exanthema [Recovered/Resolved]
